FAERS Safety Report 8495233-1 (Version None)
Quarter: 2012Q3

REPORT INFORMATION
  Report Type: 
  Country: None (occurrence: None)
  Receive Date: 20120709
  Receipt Date: 20120618
  Transmission Date: 20120928
  Serious: No
  Sender: FDA-Public Use
  Company Number: US-ASTRAZENECA-2012SE40913

PATIENT
  Age: 54 Year
  Sex: Male
  Weight: 77.1 kg

DRUGS (7)
  1. OMEPRAZOLE [Suspect]
     Indication: REFLUX LARYNGITIS
     Route: 048
  2. NEXIUM [Suspect]
     Route: 048
     Dates: start: 20120412
  3. LIBREX [Concomitant]
     Indication: GASTROINTESTINAL HYPERMOTILITY
  4. VITAMIN E [Concomitant]
     Indication: MUSCLE TWITCHING
  5. PREVACID [Concomitant]
  6. NEXIUM [Suspect]
     Indication: REFLUX LARYNGITIS
     Route: 048
  7. HYDROCODON [Concomitant]
     Indication: MYALGIA

REACTIONS (8)
  - MUSCLE TWITCHING [None]
  - MYALGIA [None]
  - OFF LABEL USE [None]
  - CHEST PAIN [None]
  - GASTROINTESTINAL INFLAMMATION [None]
  - INTENTIONAL DRUG MISUSE [None]
  - DYSPHONIA [None]
  - SKIN BURNING SENSATION [None]
